FAERS Safety Report 4305915-0 (Version None)
Quarter: 2004Q1

REPORT INFORMATION
  Report Type: 
  Country: None (occurrence: None)
  Receive Date: 20040226
  Receipt Date: 20040217
  Transmission Date: 20041129
  Serious: Yes (Death)
  Sender: FDA-Public Use
  Company Number: US-JNJFOC-20040102666

PATIENT
  Age: 48 Year
  Sex: Male
  Weight: 99.7913 kg

DRUGS (4)
  1. RISPERDAL [Suspect]
     Indication: HALLUCINATION
     Dosage: 2 MG, 1 IN 1 DAY
     Dates: start: 20030401, end: 20031201
  2. SEROQUEL [Concomitant]
  3. WELLBUTRIN SR [Concomitant]
  4. ESKALITH CR [Concomitant]

REACTIONS (2)
  - COMPLETED SUICIDE [None]
  - INJURY ASPHYXIATION [None]
